FAERS Safety Report 5725924-4 (Version None)
Quarter: 2008Q2

REPORT INFORMATION
  Report Type: 
  Country: None (occurrence: None)
  Receive Date: 20080429
  Receipt Date: 20080418
  Transmission Date: 20081010
  Serious: Yes (Life-Threatening, Other)
  Sender: FDA-Public Use
  Company Number: 47414

PATIENT
  Age: 33 Year
  Sex: Male

DRUGS (1)
  1. METHYLPREDNISOLONE [Suspect]
     Indication: DEMYELINATION
     Dosage: TOTAL DOSE 2.5G

REACTIONS (2)
  - HEPATITIS ACUTE [None]
  - LIVER INJURY [None]
